FAERS Safety Report 7787320-8 (Version None)
Quarter: 2011Q3

REPORT INFORMATION
  Report Type: 
  Country: None (occurrence: None)
  Receive Date: 20110929
  Receipt Date: 20110920
  Transmission Date: 20111222
  Serious: Yes (Other)
  Sender: FDA-Public Use
  Company Number: US-ELI_LILLY_AND_COMPANY-US201109006999

PATIENT
  Sex: Male

DRUGS (4)
  1. CLINDAMYCIN [Concomitant]
     Dosage: UNK
  2. CIALIS [Suspect]
     Indication: ERECTILE DYSFUNCTION
     Dosage: 20 MG, PRN
  3. PERCOCET [Concomitant]
     Dosage: UNK
  4. KEFLEX [Concomitant]
     Dosage: UNK

REACTIONS (2)
  - DUPUYTREN'S CONTRACTURE OPERATION [None]
  - WRONG TECHNIQUE IN DRUG USAGE PROCESS [None]
